FAERS Safety Report 15562860 (Version 1)
Quarter: 2018Q4

REPORT INFORMATION
  Report Type: Spontaneous
  Country: US (occurrence: US)
  Receive Date: 20181029
  Receipt Date: 20181029
  Transmission Date: 20190205
  Serious: Yes (Death)
  Sender: FDA-Public Use
  Company Number: US-PFIZER INC-2018437315

PATIENT
  Age: 22 Year
  Sex: Female

DRUGS (12)
  1. NOREPINEPHRINE BITARTRATE. [Suspect]
     Active Substance: NOREPINEPHRINE BITARTRATE
     Indication: CARDIOTOXICITY
     Dosage: UNK (INFUSIONS)
  2. SODIUM BICARBONATE. [Suspect]
     Active Substance: SODIUM BICARBONATE
     Indication: CARDIOTOXICITY
     Dosage: UNK
  3. DEXTROSE. [Suspect]
     Active Substance: DEXTROSE
     Indication: HYPERKALAEMIA
     Dosage: UNK
  4. INSULIN [Suspect]
     Active Substance: INSULIN NOS
     Indication: CARDIOTOXICITY
  5. DOPAMINE HCL [Suspect]
     Active Substance: DOPAMINE HYDROCHLORIDE
     Indication: CARDIOTOXICITY
     Dosage: UNK
  6. OVINE DIGOXIN IMMUNE FAB [Suspect]
     Active Substance: OVINE DIGOXIN IMMUNE FAB
     Dosage: 5 DF, UNK (ADDITIONAL 200 MG (FIVE VIALS))
  7. DEXTROSE. [Suspect]
     Active Substance: DEXTROSE
     Indication: CARDIOTOXICITY
  8. INSULIN [Suspect]
     Active Substance: INSULIN NOS
     Indication: HYPERKALAEMIA
     Dosage: 10 IU, UNK (BOLUS)
     Route: 040
  9. OVINE DIGOXIN IMMUNE FAB [Suspect]
     Active Substance: OVINE DIGOXIN IMMUNE FAB
     Indication: CARDIOTOXICITY
     Dosage: 5 DF, UNK (200 MG (FIVE VIALS))
  10. OVINE DIGOXIN IMMUNE FAB [Suspect]
     Active Substance: OVINE DIGOXIN IMMUNE FAB
     Dosage: 10 DF, UNK (400 MG (10 VIALS))
  11. ATROPINE SULFATE. [Suspect]
     Active Substance: ATROPINE SULFATE
     Indication: CARDIOTOXICITY
     Dosage: UNK
  12. FAT EMULSION NOS [Suspect]
     Active Substance: EGG PHOSPHOLIPIDS\SAFFLOWER OIL\SOYBEAN OIL
     Indication: CARDIOTOXICITY
     Dosage: 100 ML, UNK
     Route: 040

REACTIONS (1)
  - Drug ineffective [Fatal]
